FAERS Safety Report 24152476 (Version 1)
Quarter: 2024Q3

REPORT INFORMATION
  Report Type: Spontaneous
  Country: US (occurrence: US)
  Receive Date: 20240730
  Receipt Date: 20240730
  Transmission Date: 20241016
  Serious: Yes (Other)
  Sender: COSETTE PHARMACEUTICALS
  Company Number: US-COSETTE-CP2024US000181

PATIENT
  Age: 36 Year
  Sex: Female
  Weight: 61.23 kg

DRUGS (1)
  1. VYLEESI [Suspect]
     Active Substance: BREMELANOTIDE ACETATE
     Indication: Product used for unknown indication
     Route: 065
     Dates: start: 20240603, end: 20240603

REACTIONS (4)
  - Syncope [Recovered/Resolved]
  - Pallor [Recovered/Resolved]
  - Hyperhidrosis [Recovered/Resolved]
  - Nausea [Recovered/Resolved]

NARRATIVE: CASE EVENT DATE: 20240603
